FAERS Safety Report 6535448-2 (Version None)
Quarter: 2010Q1

REPORT INFORMATION
  Report Type: 
  Country: None (occurrence: None)
  Receive Date: 20100113
  Receipt Date: 20100105
  Transmission Date: 20100710
  Serious: Yes (Life-Threatening, Hospitalization)
  Sender: FDA-Public Use
  Company Number: US-TYCO HEALTHCARE/MALLINCKRODT-T201000004

PATIENT
  Age: 53 Year
  Sex: Female
  Weight: 70 kg

DRUGS (4)
  1. ACETAMINOPHEN AND HYDROCODONE BITARTRATE [Suspect]
     Dosage: 20 TABLETS
  2. DESIPRAMINE [Suspect]
     Dosage: 10 TABLETS
  3. VENLAFAXINE [Suspect]
     Dosage: 10 TABLETS
  4. AMITRIPTYLINE HCL [Concomitant]
     Dosage: UNK

REACTIONS (4)
  - CONDUCTION DISORDER [None]
  - HYPOTENSION [None]
  - MENTAL STATUS CHANGES [None]
  - THERAPEUTIC AGENT TOXICITY [None]
